FAERS Safety Report 11272770 (Version 1)
Quarter: 2015Q3

REPORT INFORMATION
  Report Type: Spontaneous
  Country: DE (occurrence: DE)
  Receive Date: 20150715
  Receipt Date: 20150715
  Transmission Date: 20151125
  Serious: Yes (Other)
  Sender: FDA-Public Use
  Company Number: DE-DRREDDYS-GER/GER/15/0049355

PATIENT
  Age: 34 Year
  Sex: Female
  Weight: 64 kg

DRUGS (8)
  1. TAVOR [Concomitant]
     Active Substance: LORAZEPAM
     Dosage: DOSAGE BETWEEN 30 AND 75 MG
     Route: 064
  2. FOLSAEURE [Concomitant]
     Active Substance: FOLIC ACID
     Indication: PROPHYLAXIS OF NEURAL TUBE DEFECT
     Route: 048
  3. SERTRALINE [Suspect]
     Active Substance: SERTRALINE HYDROCHLORIDE
     Indication: DEPRESSION
     Route: 048
     Dates: start: 20140328, end: 20141211
  4. IBUPROFEN. [Concomitant]
     Active Substance: IBUPROFEN
     Indication: BRONCHITIS
     Route: 048
  5. AMOXICLAV [Concomitant]
     Active Substance: AMOXICILLIN\CLAVULANIC ACID
     Indication: BRONCHITIS
     Route: 048
  6. PARACETAMOL [Concomitant]
     Active Substance: ACETAMINOPHEN
     Indication: BRONCHITIS
     Route: 048
  7. TAVOR [Concomitant]
     Active Substance: LORAZEPAM
     Indication: PANIC REACTION
     Route: 048
  8. RISPERDAL [Suspect]
     Active Substance: RISPERIDONE
     Indication: ANXIETY
     Route: 048

REACTIONS (3)
  - Premature rupture of membranes [Unknown]
  - Suicide attempt [Unknown]
  - Exposure during pregnancy [Unknown]
